FAERS Safety Report 10473825 (Version 1)
Quarter: 2014Q3

REPORT INFORMATION
  Report Type: Spontaneous
  Country: FR (occurrence: FR)
  Receive Date: 20140924
  Receipt Date: 20140924
  Transmission Date: 20150326
  Serious: Yes (Hospitalization)
  Sender: FDA-Public Use
  Company Number: PHHY2014FR121683

PATIENT
  Age: 54 Year
  Sex: Male

DRUGS (12)
  1. NOROXINE [Concomitant]
     Active Substance: NORFLOXACIN
     Dosage: 400 MG, QD
     Route: 048
  2. NEORAL [Suspect]
     Active Substance: CYCLOSPORINE
     Indication: PROPHYLAXIS AGAINST TRANSPLANT REJECTION
     Dosage: 4000 MG, DAILY
     Route: 048
     Dates: start: 20130613, end: 20130614
  3. SIMULECT [Suspect]
     Active Substance: BASILIXIMAB
     Dosage: 4000 MG, DAILY
     Route: 042
     Dates: start: 20130613, end: 201306
  4. CELLCEPT [Suspect]
     Active Substance: MYCOPHENOLATE MOFETIL\MYCOPHENOLATE MOFETIL HYDROCHLORIDE
     Dosage: 4000 MG, DAILY
     Route: 048
     Dates: start: 20130613
  5. BARACLUDE [Concomitant]
     Active Substance: ENTECAVIR
     Indication: PROPHYLAXIS
     Dosage: 0.5 MG, EVERY 2 DAYS
  6. ZOLPIDEM [Concomitant]
     Active Substance: ZOLPIDEM\ZOLPIDEM TARTRATE
     Dosage: UNK
  7. VANCOMYCIN [Suspect]
     Active Substance: VANCOMYCIN
     Dosage: UNK UKN, UNK
     Route: 042
     Dates: start: 201306, end: 201306
  8. PROPRANOLOL [Concomitant]
     Active Substance: PROPRANOLOL\PROPRANOLOL HYDROCHLORIDE
     Dosage: 40 MG, BID 1/2 TABLET
     Route: 048
  9. CELLCEPT [Suspect]
     Active Substance: MYCOPHENOLATE MOFETIL\MYCOPHENOLATE MOFETIL HYDROCHLORIDE
     Dosage: 3000 MG, DAILY
     Dates: start: 20130626, end: 201307
  10. INEXIUM//ESOMEPRAZOLE MAGNESIUM [Concomitant]
     Active Substance: ESOMEPRAZOLE MAGNESIUM
     Dosage: 40 MG, QD
  11. DUPHALAC                                /NET/ [Concomitant]
     Dosage: UNK UKN, BID
  12. MODIGRAF [Suspect]
     Active Substance: TACROLIMUS
     Dosage: UNK UKN, UNK
     Route: 048
     Dates: end: 20130705

REACTIONS (3)
  - Hepatic encephalopathy [Recovering/Resolving]
  - Condition aggravated [Recovering/Resolving]
  - Renal failure acute [Recovered/Resolved]

NARRATIVE: CASE EVENT DATE: 20130614
